FAERS Safety Report 5163922-2 (Version None)
Quarter: 2006Q4

REPORT INFORMATION
  Report Type: 
  Country: None (occurrence: None)
  Receive Date: 20061124
  Receipt Date: 20060227
  Transmission Date: 20070319
  Serious: Yes (Hospitalization, Other)
  Sender: FDA-Public Use
  Company Number: 2006028697

PATIENT
  Age: 43 Year
  Sex: Male
  Weight: 65.7716 kg

DRUGS (5)
  1. VIAGRA [Suspect]
     Indication: ERECTILE DYSFUNCTION
     Dosage: (100 MG)
     Dates: start: 20050201, end: 20060101
  2. PAXIL [Concomitant]
  3. FOSAMAX [Concomitant]
  4. CALCIUM WITH VITAMIN D (CALCIUM PHOSPHATE, CALCIUM SODIUM LACTATE, ERG [Concomitant]
  5. COMBIVENT [Concomitant]

REACTIONS (6)
  - CHEST PAIN [None]
  - ECONOMIC PROBLEM [None]
  - EYE PAIN [None]
  - REFUSAL OF TREATMENT BY PATIENT [None]
  - VISION BLURRED [None]
  - VISUAL DISTURBANCE [None]
